FAERS Safety Report 9853324 (Version 4)
Quarter: 2014Q2

REPORT INFORMATION
  Report Type: Spontaneous
  Country: US (occurrence: US)
  Receive Date: 20140129
  Receipt Date: 20140605
  Transmission Date: 20141212
  Serious: No
  Sender: FDA-Public Use
  Company Number: US-GILEAD-2014-0093292

PATIENT
  Age: 67 Year
  Sex: Female

DRUGS (1)
  1. LETAIRIS [Suspect]
     Indication: PULMONARY FIBROSIS
     Dosage: 10 MG, QD
     Route: 048
     Dates: start: 20140109

REACTIONS (3)
  - Swelling [Unknown]
  - Headache [Unknown]
  - Constipation [Unknown]
